FAERS Safety Report 7075072-9 (Version None)
Quarter: 2010Q4

REPORT INFORMATION
  Report Type: 
  Country: None (occurrence: None)
  Receive Date: 20101029
  Receipt Date: 20100402
  Transmission Date: 20110411
  Serious: No
  Sender: FDA-Public Use
  Company Number: US-WYE-H14454210

PATIENT
  Age: 22 Year
  Sex: Male

DRUGS (2)
  1. ADVIL PM [Suspect]
     Indication: PRODUCT USED FOR UNKNOWN INDICATION
     Dosage: 10 CAPLETS 1 TIME
     Route: 048
     Dates: start: 20100402, end: 20100402
  2. ETHANOL [Suspect]
     Indication: PRODUCT USED FOR UNKNOWN INDICATION
     Dosage: UNKNOWN
     Route: 048

REACTIONS (2)
  - OVERDOSE [None]
  - TRISMUS [None]
